FAERS Safety Report 4849703-5 (Version None)
Quarter: 2005Q4

REPORT INFORMATION
  Report Type: 
  Country: None (occurrence: None)
  Receive Date: 20051115
  Receipt Date: 20051014
  Transmission Date: 20060501
  Serious: No
  Sender: FDA-Public Use
  Company Number: S05-USA-04611-01

PATIENT

DRUGS (1)
  1. NAMENDA [Suspect]

REACTIONS (1)
  - GOUT [None]
